FAERS Safety Report 6297307-2 (Version None)
Quarter: 2009Q3

REPORT INFORMATION
  Report Type: 
  Country: None (occurrence: None)
  Receive Date: 20090805
  Receipt Date: 20090724
  Transmission Date: 20100115
  Serious: Yes (Hospitalization)
  Sender: FDA-Public Use
  Company Number: CH-PFIZER INC-2009245182

PATIENT
  Age: 68 Year

DRUGS (2)
  1. CABASER [Suspect]
     Indication: PARKINSON'S DISEASE
     Dosage: 2 MG, 3X/DAY
     Route: 048
  2. MADOPAR [Suspect]
     Indication: PARKINSON'S DISEASE
     Dosage: 125 MG, 3X/DAY
     Route: 048

REACTIONS (4)
  - CONFUSIONAL STATE [None]
  - DYSARTHRIA [None]
  - SALIVARY HYPERSECRETION [None]
  - SOMNOLENCE [None]
